FAERS Safety Report 14198810 (Version 2)
Quarter: 2018Q1

REPORT INFORMATION
  Report Type: Spontaneous
  Country: US (occurrence: US)
  Receive Date: 20171117
  Receipt Date: 20180116
  Transmission Date: 20180508
  Serious: No
  Sender: FDA-Public Use
  Company Number: US-PFIZER INC-2017495558

PATIENT
  Age: 64 Year
  Sex: Female
  Weight: 95.25 kg

DRUGS (2)
  1. EUCRISA [Suspect]
     Active Substance: CRISABOROLE
     Indication: ECZEMA
     Dosage: UNK, 2X/DAY (BID)
     Route: 061
     Dates: start: 20171101
  2. EUCRISA [Suspect]
     Active Substance: CRISABOROLE
     Indication: BLEPHARITIS

REACTIONS (1)
  - Eye irritation [Recovered/Resolved]

NARRATIVE: CASE EVENT DATE: 20171113
